FAERS Safety Report 16020310 (Version 2)
Quarter: 2019Q3

REPORT INFORMATION
  Report Type: Spontaneous
  Country: PL (occurrence: PL)
  Receive Date: 20190228
  Receipt Date: 20190812
  Transmission Date: 20191004
  Serious: Yes (Death, Life-Threatening, Disabling, Other)
  Sender: FDA-Public Use
  Company Number: PHHY2019PL042236

PATIENT
  Age: 67 Year
  Sex: Female
  Weight: 70 kg

DRUGS (54)
  1. VANCOMYCIN [Suspect]
     Active Substance: VANCOMYCIN
     Indication: PROTEUS INFECTION
     Dosage: 1.5 MG, QD
     Route: 042
     Dates: start: 20181027
  2. GENSULIN R [Suspect]
     Active Substance: INSULIN HUMAN
     Dosage: 1 IU, QH (INFUSION OF INSULIN BETWEEN 2 AND 7)
     Route: 042
     Dates: start: 20181123, end: 20181123
  3. MEMOTROPIL [Suspect]
     Active Substance: PIRACETAM
     Indication: PRODUCT USED FOR UNKNOWN INDICATION
     Dosage: 2.4 G, QD
     Route: 042
     Dates: start: 20181024, end: 20181115
  4. DEXAVEN [Suspect]
     Active Substance: DEXAMETHASONE
     Indication: PRODUCT USED FOR UNKNOWN INDICATION
     Dosage: 8 MG, QD
     Route: 042
  5. LEVONOR (NOREPINEPHRINE BITARTRATE) [Suspect]
     Active Substance: NOREPINEPHRINE BITARTRATE
     Indication: PRODUCT USED FOR UNKNOWN INDICATION
     Dosage: 1.4 MG, QH
     Route: 042
     Dates: start: 20181012, end: 20181016
  6. PARACETAMOL [Concomitant]
     Active Substance: ACETAMINOPHEN
     Indication: PRODUCT USED FOR UNKNOWN INDICATION
     Dosage: 1 G, QD
     Route: 042
     Dates: start: 20181015, end: 20181015
  7. METOCARD ZK [Concomitant]
     Active Substance: METOPROLOL TARTRATE
     Indication: PRODUCT USED FOR UNKNOWN INDICATION
     Dosage: 95 MG, UNK
     Route: 048
  8. VANCOMYCIN [Suspect]
     Active Substance: VANCOMYCIN
     Indication: STAPHYLOCOCCAL INFECTION
     Dosage: 1 G, QD
     Route: 042
     Dates: start: 20181028, end: 20181109
  9. GENSULIN R [Suspect]
     Active Substance: INSULIN HUMAN
     Dosage: 15 IU, QD
     Route: 042
     Dates: start: 20181117, end: 20181117
  10. GENSULIN R [Suspect]
     Active Substance: INSULIN HUMAN
     Dosage: 20 IU, QD
     Route: 042
     Dates: start: 20181122, end: 20181122
  11. MEMOTROPIL [Suspect]
     Active Substance: PIRACETAM
     Dosage: 2.4 G, QD
     Route: 042
     Dates: start: 20181116, end: 20181125
  12. COSMOFER [Concomitant]
     Active Substance: IRON DEXTRAN
     Indication: PRODUCT USED FOR UNKNOWN INDICATION
     Dosage: 1 G/100 ML, UNK
     Route: 042
  13. AMANTIX [Concomitant]
     Indication: PRODUCT USED FOR UNKNOWN INDICATION
     Dosage: 500 ML, (5H INFUSION)
     Route: 042
  14. PYRALGIN [Concomitant]
     Dosage: 2.5 MG,/100 ML UNK
     Route: 042
     Dates: start: 20181101
  15. GENSULIN R [Suspect]
     Active Substance: INSULIN HUMAN
     Indication: DIABETES MELLITUS
     Dosage: 12.5 IU, QD
     Route: 042
     Dates: start: 20181116, end: 20181116
  16. GLUCOSE [Suspect]
     Active Substance: DEXTROSE
     Dosage: 500 ML, TID
     Route: 042
     Dates: start: 20181117, end: 20181117
  17. MORPHINE [Suspect]
     Active Substance: MORPHINE
     Indication: PRODUCT USED FOR UNKNOWN INDICATION
     Dosage: 145 MG, QD
     Route: 042
     Dates: start: 20181124, end: 20181125
  18. LEVONOR (NOREPINEPHRINE BITARTRATE) [Suspect]
     Active Substance: NOREPINEPHRINE BITARTRATE
     Dosage: 2 MG, QH
     Route: 042
     Dates: start: 20181119
  19. LEVONOR (NOREPINEPHRINE BITARTRATE) [Suspect]
     Active Substance: NOREPINEPHRINE BITARTRATE
     Dosage: 1.4 MG, QH
     Route: 042
     Dates: start: 20181124, end: 20181125
  20. CORDARONE [Concomitant]
     Active Substance: AMIODARONE HYDROCHLORIDE
     Indication: PRODUCT USED FOR UNKNOWN INDICATION
     Dosage: 900 MG, QD
     Route: 041
     Dates: start: 20181115, end: 20181118
  21. FUROSEMID [Concomitant]
     Active Substance: FUROSEMIDE
     Indication: PRODUCT USED FOR UNKNOWN INDICATION
     Dosage: 5 MG, QH
     Route: 042
     Dates: start: 20181013, end: 20181023
  22. GENSULIN R [Suspect]
     Active Substance: INSULIN HUMAN
     Dosage: 15 IU, QD
     Route: 042
     Dates: start: 20181119, end: 20181119
  23. GENSULIN R [Suspect]
     Active Substance: INSULIN HUMAN
     Dosage: 24.5 IU, QD
     Route: 042
     Dates: start: 20181120, end: 20181120
  24. GENSULIN R [Suspect]
     Active Substance: INSULIN HUMAN
     Dosage: 12.5 IU, QD
     Route: 042
     Dates: start: 20181123, end: 20181123
  25. LEVONOR (NOREPINEPHRINE BITARTRATE) [Suspect]
     Active Substance: NOREPINEPHRINE BITARTRATE
     Dosage: 4 MG, QH
     Route: 042
     Dates: start: 20181116, end: 20181117
  26. LEVONOR (NOREPINEPHRINE BITARTRATE) [Suspect]
     Active Substance: NOREPINEPHRINE BITARTRATE
     Dosage: 3.2 MG, QH
     Route: 042
     Dates: start: 20181118
  27. VANCOMYCIN [Suspect]
     Active Substance: VANCOMYCIN
     Indication: NOSOCOMIAL INFECTION
  28. GENSULIN R [Suspect]
     Active Substance: INSULIN HUMAN
     Dosage: 12.5 IU, QD
     Route: 042
     Dates: start: 20181118, end: 20181118
  29. GENSULIN R [Suspect]
     Active Substance: INSULIN HUMAN
     Dosage: 15 IU, QD (INFUSION OF INSULIN CONTINUED)
     Route: 042
     Dates: start: 20181125, end: 20181125
  30. GLUCOSE [Suspect]
     Active Substance: DEXTROSE
     Dosage: 500 ML, BID
     Route: 042
     Dates: start: 20181118, end: 20181125
  31. OXYNORM [Concomitant]
     Active Substance: OXYCODONE HYDROCHLORIDE
     Indication: PRODUCT USED FOR UNKNOWN INDICATION
     Dosage: 2 MG, QH
     Route: 042
     Dates: start: 20181012, end: 20181018
  32. VIREGYT-K [Concomitant]
     Indication: PRODUCT USED FOR UNKNOWN INDICATION
     Dosage: 50 MG, QD
     Route: 048
     Dates: start: 20181024, end: 20181114
  33. SODIUM BICARBONATE. [Concomitant]
     Active Substance: SODIUM BICARBONATE
     Indication: PRODUCT USED FOR UNKNOWN INDICATION
     Dosage: 100 MG, UNK
     Route: 042
  34. CORHYDRON [Concomitant]
     Indication: PRODUCT USED FOR UNKNOWN INDICATION
     Dosage: 400 MG, QD
     Route: 042
     Dates: start: 20181116, end: 20181121
  35. VITACON [Concomitant]
     Indication: PRODUCT USED FOR UNKNOWN INDICATION
     Dosage: 2 G/200 ML, UNK
     Route: 042
  36. IPP [PANTOPRAZOLE] [Suspect]
     Active Substance: PANTOPRAZOLE
     Indication: PRODUCT USED FOR UNKNOWN INDICATION
     Dosage: 40 MG, QD
     Route: 042
     Dates: start: 20181015, end: 20181115
  37. IPP [PANTOPRAZOLE] [Suspect]
     Active Substance: PANTOPRAZOLE
     Dosage: 80 MG, QD
     Route: 042
     Dates: start: 20181116, end: 20181125
  38. OXYNORM [Concomitant]
     Active Substance: OXYCODONE HYDROCHLORIDE
     Dosage: 2 MG, QH
     Route: 042
     Dates: start: 20181115, end: 20181120
  39. DIGOXIN. [Concomitant]
     Active Substance: DIGOXIN
     Indication: PRODUCT USED FOR UNKNOWN INDICATION
     Dosage: 1 G, UNK
     Route: 042
  40. KWETAPLEX [Concomitant]
     Active Substance: QUETIAPINE FUMARATE
     Indication: PRODUCT USED FOR UNKNOWN INDICATION
     Dosage: 50 MG, QD
     Route: 048
     Dates: start: 20181017, end: 20181101
  41. GLUCOSE [Suspect]
     Active Substance: DEXTROSE
     Indication: PRODUCT USED FOR UNKNOWN INDICATION
     Dosage: 500 ML, BID
     Route: 042
     Dates: start: 20181116, end: 20181116
  42. IMIPENEM [Suspect]
     Active Substance: IMIPENEM
     Indication: NOSOCOMIAL INFECTION
     Dosage: 4 G, QD
     Route: 042
  43. FUROSEMID [Concomitant]
     Active Substance: FUROSEMIDE
     Dosage: 40 MG, QD
     Route: 042
     Dates: start: 20181024, end: 20181101
  44. VANCOMYCIN [Suspect]
     Active Substance: VANCOMYCIN
     Indication: SERRATIA INFECTION
     Dosage: UNK
     Route: 042
     Dates: start: 20181015, end: 20181021
  45. VANCOMYCIN [Suspect]
     Active Substance: VANCOMYCIN
     Indication: KLEBSIELLA INFECTION
     Dosage: 2 G, QD
     Route: 042
     Dates: start: 20181124, end: 20181125
  46. VANCOMYCIN [Suspect]
     Active Substance: VANCOMYCIN
     Indication: STENOTROPHOMONAS INFECTION
  47. GENSULIN R [Suspect]
     Active Substance: INSULIN HUMAN
     Dosage: 25 IU, QD
     Route: 042
     Dates: start: 20181121, end: 20181121
  48. GENSULIN R [Suspect]
     Active Substance: INSULIN HUMAN
     Dosage: 56 IU, QD (56 UNITS OF INSULIN,2 UNITS PER HOUR)
     Route: 042
     Dates: start: 20181124, end: 20181124
  49. HEPA-MERZ (ORNITHINE ASPARTATE) [Suspect]
     Active Substance: ORNITHINE ASPARTATE
     Indication: PRODUCT USED FOR UNKNOWN INDICATION
     Dosage: 20 MG, QD
     Route: 041
  50. LEVONOR (NOREPINEPHRINE BITARTRATE) [Suspect]
     Active Substance: NOREPINEPHRINE BITARTRATE
     Dosage: 1.7 MG, QH
     Route: 042
     Dates: start: 20181120, end: 20181123
  51. CLEXANE [Concomitant]
     Active Substance: ENOXAPARIN SODIUM
     Indication: PRODUCT USED FOR UNKNOWN INDICATION
     Dosage: UNK
     Route: 042
  52. PYRALGIN [Concomitant]
     Indication: PRODUCT USED FOR UNKNOWN INDICATION
     Dosage: 2.5 MG/100 ML, UNK
     Route: 042
     Dates: start: 20181015
  53. BETALOC [Concomitant]
     Active Substance: METOPROLOL TARTRATE
     Indication: PRODUCT USED FOR UNKNOWN INDICATION
     Dosage: 20 MG, QD
     Route: 042
     Dates: start: 20181015, end: 20181015
  54. MEROPENEM. [Concomitant]
     Active Substance: MEROPENEM
     Indication: PRODUCT USED FOR UNKNOWN INDICATION
     Dosage: 3 G, QD/300 ML
     Route: 042

REACTIONS (34)
  - Blood creatinine increased [Fatal]
  - Hypochromasia [Fatal]
  - Macrocytosis [Fatal]
  - Hyperaemia [Fatal]
  - Liver injury [Fatal]
  - Acidosis [Fatal]
  - Central nervous system injury [Fatal]
  - Blood pressure decreased [Fatal]
  - Chromaturia [Fatal]
  - Hyperkalaemia [Fatal]
  - Creatinine renal clearance decreased [Fatal]
  - Hypotonia [Fatal]
  - Prescribed overdose [Fatal]
  - Tachyarrhythmia [Fatal]
  - Haemoglobin decreased [Fatal]
  - Red blood cell count decreased [Fatal]
  - Bradycardia [Fatal]
  - Thrombocytopenia [Fatal]
  - Anisocytosis [Fatal]
  - Hepatitis fulminant [Fatal]
  - Hypoglycaemia [Fatal]
  - Blood urea increased [Fatal]
  - Haemolytic anaemia [Fatal]
  - Oliguria [Fatal]
  - Petechiae [Fatal]
  - Drug level above therapeutic [Fatal]
  - Hyperchloraemia [Fatal]
  - Renal injury [Fatal]
  - Blood bilirubin increased [Fatal]
  - Hypoxia [Fatal]
  - Loss of consciousness [Fatal]
  - Splenic injury [Fatal]
  - Tachycardia [Fatal]
  - Heart rate increased [Fatal]

NARRATIVE: CASE EVENT DATE: 20181017
